FAERS Safety Report 15374653 (Version 1)
Quarter: 2018Q3

REPORT INFORMATION
  Report Type: Spontaneous
  Country: US (occurrence: US)
  Receive Date: 20180906
  Receipt Date: 20180906
  Transmission Date: 20181010
  Serious: Yes (Other)
  Sender: FDA-Public Use
  Company Number: None

PATIENT
  Age: 54 Year
  Sex: Female
  Weight: 81 kg

DRUGS (1)
  1. COPAXONE [Suspect]
     Active Substance: GLATIRAMER ACETATE
     Indication: MULTIPLE SCLEROSIS
     Dosage: ?          QUANTITY:1 INJECTION(S);OTHER FREQUENCY:THREE TIMES A WEEK;OTHER ROUTE:INJECTION?
     Dates: start: 20180403, end: 20180628

REACTIONS (5)
  - Loss of personal independence in daily activities [None]
  - Nausea [None]
  - Diarrhoea [None]
  - Multiple sclerosis relapse [None]
  - Malaise [None]

NARRATIVE: CASE EVENT DATE: 20180403
